FAERS Safety Report 12536845 (Version 1)
Quarter: 2016Q3

REPORT INFORMATION
  Report Type: Spontaneous
  Country: US (occurrence: US)
  Receive Date: 20160707
  Receipt Date: 20160707
  Transmission Date: 20161109
  Serious: Yes (Other)
  Sender: FDA-Public Use
  Company Number: US-AKORN PHARMACEUTICALS-2016AKN00403

PATIENT
  Age: 49 Year
  Sex: Female

DRUGS (2)
  1. LIDOCAINE. [Concomitant]
     Active Substance: LIDOCAINE
  2. TRIAMCINOLONE ACETONIDE. [Suspect]
     Active Substance: TRIAMCINOLONE ACETONIDE
     Indication: OSTEOARTHRITIS
     Dosage: 80 MG, EVERY 6 MONTHS
     Route: 014

REACTIONS (1)
  - Chorioretinopathy [Recovered/Resolved]
